FAERS Safety Report 15431301 (Version 1)
Quarter: 2018Q3

REPORT INFORMATION
  Report Type: Spontaneous
  Country: US (occurrence: US)
  Receive Date: 20180926
  Receipt Date: 20180926
  Transmission Date: 20181010
  Serious: No
  Sender: FDA-Public Use
  Company Number: US-SUNOVION-2018SUN003552

PATIENT
  Sex: Male

DRUGS (3)
  1. LATUDA [Suspect]
     Active Substance: LURASIDONE HYDROCHLORIDE
     Indication: BIPOLAR DISORDER
     Dosage: 10 MG, UNK
     Route: 048
  2. LATUDA [Suspect]
     Active Substance: LURASIDONE HYDROCHLORIDE
     Dosage: 30 MG, UNK
     Route: 048
  3. LATUDA [Suspect]
     Active Substance: LURASIDONE HYDROCHLORIDE
     Dosage: 20 MG, UNK
     Route: 048

REACTIONS (3)
  - Bipolar disorder [Unknown]
  - Drug ineffective [Unknown]
  - Abnormal dreams [Unknown]
